FAERS Safety Report 19277335 (Version 1)
Quarter: 2021Q2

REPORT INFORMATION
  Report Type: Spontaneous
  Country: US (occurrence: US)
  Receive Date: 20210519
  Receipt Date: 20210519
  Transmission Date: 20210717
  Serious: Yes (Hospitalization, Other)
  Sender: FDA-Public Use
  Company Number: US-SAGENT PHARMACEUTICALS-2021SAG001024

PATIENT
  Age: 49 Year
  Sex: Female

DRUGS (3)
  1. FLUOROURACIL. [Suspect]
     Active Substance: FLUOROURACIL
     Indication: NEUROENDOCRINE TUMOUR
     Dosage: UNK
  2. OXALIPLATIN. [Suspect]
     Active Substance: OXALIPLATIN
     Indication: NEUROENDOCRINE TUMOUR
     Dosage: UNK
  3. FOLINIC ACID [Suspect]
     Active Substance: LEUCOVORIN
     Indication: NEUROENDOCRINE TUMOUR
     Dosage: UNK

REACTIONS (3)
  - Cerebral vasoconstriction [Unknown]
  - Cerebrovascular accident [Unknown]
  - Partial seizures [Unknown]
